FAERS Safety Report 6077008-6 (Version None)
Quarter: 2009Q1

REPORT INFORMATION
  Report Type: 
  Country: None (occurrence: None)
  Receive Date: 20090213
  Receipt Date: 20090205
  Transmission Date: 20090719
  Serious: Yes (Hospitalization, Other)
  Sender: FDA-Public Use
  Company Number: US-BAYER-200912659NA

PATIENT
  Age: 25 Year
  Sex: Female

DRUGS (1)
  1. MIRENA [Suspect]
     Indication: CONTRACEPTION
     Route: 015
     Dates: start: 20080701, end: 20090204

REACTIONS (4)
  - IUCD COMPLICATION [None]
  - NEPHROLITHIASIS [None]
  - PAIN [None]
  - UTERINE RUPTURE [None]
